FAERS Safety Report 19634458 (Version 2)
Quarter: 2021Q3

REPORT INFORMATION
  Report Type: Spontaneous
  Country: GB (occurrence: GB)
  Receive Date: 20210730
  Receipt Date: 20210810
  Transmission Date: 20211014
  Serious: Yes (Other)
  Sender: FDA-Public Use
  Company Number: GB-CELLTRION INC.-2021GB010039

PATIENT

DRUGS (1)
  1. REMSIMA [Suspect]
     Active Substance: INFLIXIMAB
     Indication: CROHN^S DISEASE
     Dosage: 120 MG, EOW (ROUTE: AS DIRECTED)
     Route: 058

REACTIONS (2)
  - SARS-CoV-2 test positive [Unknown]
  - Intentional dose omission [Unknown]
